FAERS Safety Report 4298539-5 (Version None)
Quarter: 2004Q1

REPORT INFORMATION
  Report Type: 
  Country: None (occurrence: None)
  Receive Date: 20040218
  Receipt Date: 20040115
  Transmission Date: 20041129
  Serious: Yes (Death, Hospitalization, Other)
  Sender: FDA-Public Use
  Company Number: JP-BRISTOL-MYERS SQUIBB COMPANY-12479374

PATIENT
  Age: 69 Year
  Sex: Male

DRUGS (8)
  1. TAXOL [Suspect]
     Indication: GASTRIC CANCER
     Route: 042
     Dates: start: 20031212, end: 20031226
  2. LOPEMIN [Concomitant]
     Route: 048
     Dates: start: 20031010, end: 20031230
  3. COLONEL [Concomitant]
     Route: 048
     Dates: start: 20031010, end: 20031230
  4. SEROTONE [Concomitant]
     Indication: PREMEDICATION
     Route: 042
     Dates: start: 20031212, end: 20031226
  5. DECADRON [Concomitant]
     Indication: PREMEDICATION
     Route: 042
     Dates: start: 20031212, end: 20031226
  6. GASTER [Concomitant]
     Indication: PREMEDICATION
     Route: 042
     Dates: start: 20031212, end: 20031226
  7. RESTAMIN [Concomitant]
     Indication: PREMEDICATION
     Route: 042
     Dates: start: 20031212, end: 20031226
  8. ENSURE [Concomitant]
     Route: 048
     Dates: start: 20031212, end: 20031230

REACTIONS (11)
  - ANOREXIA [None]
  - BONE MARROW DEPRESSION [None]
  - CARDIAC ARREST [None]
  - CYANOSIS [None]
  - DEHYDRATION [None]
  - DEPRESSED LEVEL OF CONSCIOUSNESS [None]
  - FAECAL INCONTINENCE [None]
  - HEPATIC FUNCTION ABNORMAL [None]
  - HYPOPROTEINAEMIA [None]
  - MALAISE [None]
  - RESPIRATORY ARREST [None]
